FAERS Safety Report 22028969 (Version 1)
Quarter: 2023Q1

REPORT INFORMATION
  Report Type: Spontaneous
  Country: NL (occurrence: NL)
  Receive Date: 20230223
  Receipt Date: 20230223
  Transmission Date: 20230418
  Serious: Yes (Other)
  Sender: FDA-Public Use
  Company Number: None

PATIENT
  Sex: Female
  Weight: 80 kg

DRUGS (3)
  1. OXYCODONE [Suspect]
     Active Substance: OXYCODONE
     Indication: Pain in extremity
     Dosage: 30 MILLIGRAM DAILY; 1X PER DAY 3 PIECES  , BRAND NAME NOT SPECIFIED
     Dates: start: 20210621, end: 20230202
  2. OXYCODONE [Suspect]
     Active Substance: OXYCODONE
     Indication: Back pain
  3. ARCOXIA [Concomitant]
     Active Substance: ETORICOXIB
     Indication: Product used for unknown indication
     Dosage: ETORICOXIB

REACTIONS (1)
  - Urinary retention [Not Recovered/Not Resolved]
